FAERS Safety Report 9225240 (Version 1)
Quarter: 2013Q2

REPORT INFORMATION
  Report Type: Spontaneous
  Country: KR (occurrence: KR)
  Receive Date: 20130411
  Receipt Date: 20130411
  Transmission Date: 20140414
  Serious: Yes (Other)
  Sender: FDA-Public Use
  Company Number: PHHY2013KR033420

PATIENT
  Sex: Female

DRUGS (2)
  1. GLIVEC [Suspect]
     Indication: GASTROINTESTINAL STROMAL TUMOUR
     Dosage: 400 MG, QD
     Route: 048
     Dates: start: 20120620, end: 201211
  2. GLIVEC [Suspect]
     Dosage: 400 MG, QD
     Route: 048
     Dates: start: 20130312

REACTIONS (6)
  - Appendicitis [Unknown]
  - Appendicitis perforated [Unknown]
  - Uterine inflammation [Unknown]
  - Cyst [Unknown]
  - Face oedema [Not Recovered/Not Resolved]
  - Asthenia [Not Recovered/Not Resolved]
